FAERS Safety Report 14354211 (Version 2)
Quarter: 2018Q2

REPORT INFORMATION
  Report Type: Spontaneous
  Country: FR (occurrence: FR)
  Receive Date: 20180105
  Receipt Date: 20180508
  Transmission Date: 20180711
  Serious: Yes (Other)
  Sender: FDA-Public Use
  Company Number: FR-MERCK KGAA-2038462

PATIENT
  Sex: Female

DRUGS (1)
  1. NOVOTHYROX [Suspect]
     Active Substance: LEVOTHYROXINE SODIUM
     Indication: POST PROCEDURAL HYPOTHYROIDISM

REACTIONS (15)
  - Loss of personal independence in daily activities [None]
  - Myalgia [Recovering/Resolving]
  - Arthralgia [Recovering/Resolving]
  - Fatigue [Recovering/Resolving]
  - Hypothyroidism [None]
  - Hypokinesia [None]
  - Alopecia [Recovering/Resolving]
  - Eyelid oedema [None]
  - Blood thyroid stimulating hormone abnormal [Recovered/Resolved]
  - Rash [Recovering/Resolving]
  - Hyperthyroidism [None]
  - Anxiety [None]
  - Stress [None]
  - Pruritus [Recovering/Resolving]
  - Nightmare [None]
